FAERS Safety Report 21921926 (Version 1)
Quarter: 2023Q1

REPORT INFORMATION
  Report Type: Spontaneous
  Country: US (occurrence: US)
  Receive Date: 20230127
  Receipt Date: 20230127
  Transmission Date: 20230417
  Serious: No
  Sender: FDA-Public Use
  Company Number: US-BIOGEN-2023BI01183232

PATIENT
  Sex: Female

DRUGS (1)
  1. SPINRAZA [Suspect]
     Active Substance: NUSINERSEN
     Indication: Spinal muscular atrophy
     Dosage: DISTRIBUTION ORDER NUMBER LISTED IN SC IS 79654048 UNKNOWN LOT NUMBER.
     Route: 050
     Dates: start: 20180918

REACTIONS (2)
  - Motor dysfunction [Unknown]
  - Asthenia [Unknown]

NARRATIVE: CASE EVENT DATE: 20221115
